FAERS Safety Report 6109960-4 (Version None)
Quarter: 2009Q1

REPORT INFORMATION
  Report Type: 
  Country: None (occurrence: None)
  Receive Date: 20090310
  Receipt Date: 20081002
  Transmission Date: 20090719
  Serious: No
  Sender: FDA-Public Use
  Company Number: A0750252A

PATIENT
  Age: 49 Year
  Sex: Female

DRUGS (1)
  1. NICORETTE (MINT) [Suspect]

REACTIONS (3)
  - ABDOMINAL DISTENSION [None]
  - MOUTH ULCERATION [None]
  - PRODUCT QUALITY ISSUE [None]
